FAERS Safety Report 6265749-7 (Version None)
Quarter: 2009Q3

REPORT INFORMATION
  Report Type: 
  Country: None (occurrence: None)
  Receive Date: 20090709
  Receipt Date: 20090709
  Transmission Date: 20100115
  Serious: Yes (Other)
  Sender: FDA-Public Use
  Company Number: None

PATIENT
  Age: 27 Year
  Sex: Female
  Weight: 65.6 kg

DRUGS (2)
  1. NEFAZODONE HCL [Suspect]
     Indication: DEPRESSION
     Dosage: 600 MG DAILY ORAL
     Route: 048
  2. TRIAMCINOLONE ACETONIDE [Suspect]
     Indication: ARTHRALGIA
     Dosage: TRIAMCINOLONE ACETONIDE 20 MG 2 INJECTIONS SACROILIAC INJECTION APPROX 2 WEEKS APART
     Dates: start: 20051206

REACTIONS (7)
  - ADRENAL INSUFFICIENCY [None]
  - FAT TISSUE INCREASED [None]
  - LOCAL SWELLING [None]
  - OEDEMA PERIPHERAL [None]
  - SWELLING FACE [None]
  - WAIST CIRCUMFERENCE INCREASED [None]
  - WEIGHT INCREASED [None]
